FAERS Safety Report 15376924 (Version 2)
Quarter: 2018Q4

REPORT INFORMATION
  Report Type: Spontaneous
  Country: US (occurrence: US)
  Receive Date: 20180913
  Receipt Date: 20181029
  Transmission Date: 20190204
  Serious: No
  Sender: FDA-Public Use
  Company Number: US-PHARMING-PHAUS2018000602

PATIENT

DRUGS (1)
  1. RUCONEST [Suspect]
     Active Substance: HUMAN C1-ESTERASE INHIBITOR
     Indication: HEREDITARY ANGIOEDEMA WITH C1 ESTERASE INHIBITOR DEFICIENCY
     Dosage: 4200 IU, EVERY 3 DAYS
     Route: 065
     Dates: start: 201801

REACTIONS (6)
  - Vein rupture [Not Recovered/Not Resolved]
  - Skin hypertrophy [Not Recovered/Not Resolved]
  - Vascular access complication [Not Recovered/Not Resolved]
  - Infusion site extravasation [Not Recovered/Not Resolved]
  - Tremor [Not Recovered/Not Resolved]
  - Infusion site pain [Not Recovered/Not Resolved]

NARRATIVE: CASE EVENT DATE: 2018
